FAERS Safety Report 6862908-7 (Version None)
Quarter: 2010Q3

REPORT INFORMATION
  Report Type: 
  Country: None (occurrence: None)
  Receive Date: 20100721
  Receipt Date: 20100715
  Transmission Date: 20110219
  Serious: Yes (Hospitalization)
  Sender: FDA-Public Use
  Company Number: B0665570A

PATIENT
  Sex: Male

DRUGS (4)
  1. AUGMENTIN '125' [Suspect]
     Indication: HIDRADENITIS
     Dosage: 1G THREE TIMES PER DAY
     Route: 048
     Dates: start: 20090320, end: 20090404
  2. TENORMIN [Concomitant]
     Route: 065
  3. ZOCOR [Concomitant]
     Route: 065
  4. ASPIRINE [Concomitant]
     Route: 065

REACTIONS (7)
  - DRY SKIN [None]
  - EOSINOPHILIA [None]
  - RASH ERYTHEMATOUS [None]
  - RASH PRURITIC [None]
  - SKIN EXFOLIATION [None]
  - SKIN PLAQUE [None]
  - TOXIC SKIN ERUPTION [None]
